FAERS Safety Report 5001471-2 (Version None)
Quarter: 2006Q2

REPORT INFORMATION
  Report Type: 
  Country: None (occurrence: None)
  Receive Date: 20060512
  Receipt Date: 20051017
  Transmission Date: 20061013
  Serious: Yes (Hospitalization)
  Sender: FDA-Public Use
  Company Number: US-MERCK-0510USA07510

PATIENT
  Age: 15 Year
  Sex: Female
  Weight: 52 kg

DRUGS (2)
  1. VIOXX [Suspect]
     Indication: ARTHRALGIA
     Route: 048
     Dates: start: 20021111, end: 20040925
  2. VIOXX [Suspect]
     Indication: OSTEOCHONDROSIS
     Route: 048
     Dates: start: 20021111, end: 20040925

REACTIONS (15)
  - BLINDNESS [None]
  - CAROTID ARTERY STENOSIS [None]
  - CEREBRAL DISORDER [None]
  - CEREBROVASCULAR ACCIDENT [None]
  - COMPLICATED MIGRAINE [None]
  - DIZZINESS [None]
  - HEADACHE [None]
  - INTRACRANIAL INJURY [None]
  - MOYAMOYA DISEASE [None]
  - MUSCULAR WEAKNESS [None]
  - NASOPHARYNGITIS [None]
  - OVERDOSE [None]
  - PAIN IN EXTREMITY [None]
  - SICKLE CELL ANAEMIA [None]
  - SICKLE CELL ANAEMIA WITH CRISIS [None]
